FAERS Safety Report 8575570-2 (Version None)
Quarter: 2012Q3

REPORT INFORMATION
  Report Type: 
  Country: None (occurrence: None)
  Receive Date: 20120807
  Receipt Date: 20120730
  Transmission Date: 20120928
  Serious: Yes (Other)
  Sender: FDA-Public Use
  Company Number: US-US-EMD SERONO, INC.-7144252

PATIENT
  Sex: Male

DRUGS (8)
  1. REBIF [Suspect]
     Route: 058
  2. NEURONTIN [Concomitant]
     Indication: HYPOAESTHESIA
  3. DIOVAN [Concomitant]
     Indication: BLOOD PRESSURE
  4. REBIF [Suspect]
     Indication: MULTIPLE SCLEROSIS
     Route: 058
     Dates: start: 20090729
  5. LASIX [Concomitant]
     Indication: BLOOD PRESSURE
  6. BYSTOLIC [Concomitant]
     Indication: BLOOD PRESSURE
  7. NEURONTIN [Concomitant]
     Indication: PARAESTHESIA
  8. ASPIRIN [Concomitant]
     Indication: BLOOD PRESSURE

REACTIONS (10)
  - FATIGUE [None]
  - INJECTION SITE ERYTHEMA [None]
  - BLOOD PRESSURE SYSTOLIC INCREASED [None]
  - INJECTION SITE DISCOLOURATION [None]
  - MUSCULAR WEAKNESS [None]
  - DIZZINESS [None]
  - MUSCLE SPASTICITY [None]
  - CEREBROVASCULAR DISORDER [None]
  - CERUMEN IMPACTION [None]
  - GAIT DISTURBANCE [None]
